FAERS Safety Report 13278938 (Version 1)
Quarter: 2017Q1

REPORT INFORMATION
  Report Type: Spontaneous
  Country: NL (occurrence: NL)
  Receive Date: 20170228
  Receipt Date: 20170228
  Transmission Date: 20170428
  Serious: Yes (Hospitalization, Other)
  Sender: FDA-Public Use
  Company Number: NL-JAZZ-2017-NL-002710

PATIENT
  Age: 43 Year
  Sex: Female
  Weight: 70 kg

DRUGS (5)
  1. XYREM [Suspect]
     Active Substance: SODIUM OXYBATE
     Indication: DETOXIFICATION
     Dosage: EQUIVALENT TO 71.4 MG/KG PER ADMINISTRATION
     Route: 048
  2. XYREM [Suspect]
     Active Substance: SODIUM OXYBATE
     Dosage: 12 ML EVERY 2 HOURS
     Route: 048
  3. SODIUM CHLORIDE. [Concomitant]
     Active Substance: SODIUM CHLORIDE
  4. XYREM [Suspect]
     Active Substance: SODIUM OXYBATE
     Dosage: 8 ML PER HOUR
     Route: 048
  5. GAMMA-BUTYROLACTONE [Concomitant]
     Active Substance: BUTYROLACTONE

REACTIONS (12)
  - Agitation [Unknown]
  - Substance abuse [Unknown]
  - Hypokalaemia [Unknown]
  - Respiratory alkalosis [Unknown]
  - Psychiatric symptom [Unknown]
  - Metabolic alkalosis [Unknown]
  - Hypernatraemia [Recovered/Resolved]
  - Blood creatine phosphokinase increased [Recovered/Resolved]
  - Renal impairment [Unknown]
  - Dehydration [Unknown]
  - Off label use [Unknown]
  - Tachycardia [Unknown]
